FAERS Safety Report 4830034-4 (Version None)
Quarter: 2005Q4

REPORT INFORMATION
  Report Type: 
  Country: None (occurrence: None)
  Receive Date: 20051115
  Receipt Date: 20051115
  Transmission Date: 20060501
  Serious: Yes (Hospitalization)
  Sender: FDA-Public Use
  Company Number: None

PATIENT
  Age: 75 Year
  Sex: Male
  Weight: 88.4514 kg

DRUGS (16)
  1. HYDROCHLOROTHIAZIDE [Suspect]
     Indication: HYPERTENSION
     Dosage: 25MG DAILY
     Dates: start: 20041215
  2. DOXAZOSIN [Concomitant]
  3. PLAVIX [Concomitant]
  4. SERTRALINE HCL [Concomitant]
  5. LISINOPRIL [Concomitant]
  6. DIGOXIN [Concomitant]
  7. HYDROCHLOROTHIAZIDE [Concomitant]
  8. PREDNISONE [Concomitant]
  9. COUMADIN [Concomitant]
  10. GLIPIZIDE [Concomitant]
  11. METOPROLOL [Concomitant]
  12. ISOSOBIDE MONONITRATE [Concomitant]
  13. SIMVASTATIN [Concomitant]
  14. FINASTERIDE [Concomitant]
  15. ALBUTEROL [Concomitant]
  16. IRON [Concomitant]

REACTIONS (11)
  - BALANCE DISORDER [None]
  - BLOOD SODIUM DECREASED [None]
  - CARDIAC FAILURE CONGESTIVE [None]
  - CONDITION AGGRAVATED [None]
  - CONFUSIONAL STATE [None]
  - COORDINATION ABNORMAL [None]
  - DIZZINESS POSTURAL [None]
  - FALL [None]
  - FLUID OVERLOAD [None]
  - HYPERVOLAEMIA [None]
  - PULMONARY OEDEMA [None]
